FAERS Safety Report 8544659-6 (Version None)
Quarter: 2012Q3

REPORT INFORMATION
  Report Type: 
  Country: None (occurrence: None)
  Receive Date: 20120727
  Receipt Date: 20120716
  Transmission Date: 20120928
  Serious: Yes (Other)
  Sender: FDA-Public Use
  Company Number: KR-ROCHE-1084440

PATIENT
  Age: 61 Year
  Sex: Male

DRUGS (3)
  1. SORAFENIB [Concomitant]
     Route: 065
  2. TRIAMCINOLONE [Concomitant]
     Route: 065
  3. RANIBIZUMAB [Suspect]
     Indication: METASTATIC RENAL CELL CARCINOMA
     Route: 050

REACTIONS (3)
  - VISUAL ACUITY REDUCED [None]
  - NEOPLASM PROGRESSION [None]
  - CHOROID NEOPLASM [None]
